FAERS Safety Report 8523247-1 (Version None)
Quarter: 2012Q3

REPORT INFORMATION
  Report Type: 
  Country: None (occurrence: None)
  Receive Date: 20120720
  Receipt Date: 20120710
  Transmission Date: 20120928
  Serious: Yes (Life-Threatening)
  Sender: FDA-Public Use
  Company Number: JP-JNJFOC-20120412911

PATIENT
  Sex: Male
  Weight: 47 kg

DRUGS (15)
  1. METHOTREXATE [Concomitant]
     Indication: BEHCET'S SYNDROME
     Route: 048
     Dates: start: 20120221
  2. PREDNISOLONE [Concomitant]
     Indication: BEHCET'S SYNDROME
     Route: 048
  3. ZOLPIDEM [Concomitant]
     Indication: INSOMNIA
     Route: 048
     Dates: start: 20120128
  4. REMICADE [Suspect]
     Indication: BEHCET'S SYNDROME
     Route: 042
     Dates: start: 20120220
  5. CLONAZEPAM [Concomitant]
     Indication: INSOMNIA
     Route: 048
     Dates: start: 20111228, end: 20120223
  6. LYRICA [Concomitant]
     Indication: NEURALGIA
     Route: 048
     Dates: start: 20120215
  7. AMLODIPINE [Concomitant]
     Indication: HYPERTENSION
     Route: 048
     Dates: start: 20120123
  8. MAGMITT [Concomitant]
     Indication: CONSTIPATION
     Route: 048
     Dates: start: 20120206
  9. PENTASA [Concomitant]
     Indication: BEHCET'S SYNDROME
     Route: 048
     Dates: start: 20100729
  10. OMEPRAZOLE [Concomitant]
     Indication: PROPHYLAXIS
     Route: 048
     Dates: start: 20120123
  11. FLAGYL [Concomitant]
     Indication: BEHCET'S SYNDROME
     Route: 065
     Dates: start: 20120218
  12. METHOTREXATE [Concomitant]
     Route: 048
     Dates: start: 20110803, end: 20120220
  13. TRAMADOL HYDROCHLORIDE/ACETAMINOPHEN [Concomitant]
     Indication: NEURALGIA
     Route: 048
     Dates: start: 20120215
  14. SORBITOL 50PC INJ [Concomitant]
     Indication: CONSTIPATION
     Route: 048
     Dates: start: 20120220
  15. MUCOSTA [Concomitant]
     Indication: PROPHYLAXIS
     Route: 048

REACTIONS (3)
  - HAEMORRHAGIC ASCITES [None]
  - GALLBLADDER NECROSIS [None]
  - GALLBLADDER PERFORATION [None]
